FAERS Safety Report 7332667-2 (Version None)
Quarter: 2011Q1

REPORT INFORMATION
  Report Type: 
  Country: None (occurrence: None)
  Receive Date: 20110304
  Receipt Date: 20110225
  Transmission Date: 20110831
  Serious: Yes (Hospitalization, Other)
  Sender: FDA-Public Use
  Company Number: GB-PFIZER INC-2011043842

PATIENT
  Age: 36 Year
  Sex: Female

DRUGS (4)
  1. LACOSAMIDE [Suspect]
     Indication: EPILEPSY
     Dosage: 100 MG PER DAY
  2. TOPIRAMATE [Suspect]
     Indication: EPILEPSY
     Dosage: 250 MG, DAILY
  3. OXCARBAZEPINE [Suspect]
     Indication: EPILEPSY
     Dosage: 1350 MG, DAILY
  4. PHENYTOIN [Suspect]
     Indication: EPILEPSY
     Dosage: 150 MG, DAILY

REACTIONS (5)
  - DIPLOPIA [None]
  - ANTICONVULSANT DRUG LEVEL DECREASED [None]
  - BALANCE DISORDER [None]
  - NEUROTOXICITY [None]
  - CONVULSION [None]
